FAERS Safety Report 4798687-7 (Version None)
Quarter: 2005Q4

REPORT INFORMATION
  Report Type: 
  Country: None (occurrence: None)
  Receive Date: 20051014
  Receipt Date: 20051005
  Transmission Date: 20060501
  Serious: Yes (Life-Threatening, Disabling)
  Sender: FDA-Public Use
  Company Number: GB-JNJFOC-20051001295

PATIENT
  Age: 34 Year
  Sex: Male

DRUGS (3)
  1. RISPERDAL [Suspect]
     Indication: PSYCHOTIC DISORDER
     Route: 048
  2. SERTRALINE HCL [Suspect]
     Indication: OBSESSIVE THOUGHTS
     Route: 048
     Dates: start: 20030916, end: 20050101
  3. SERTRALINE HCL [Suspect]
     Indication: DEPRESSION
     Dosage: 50-100 MG
     Route: 048
     Dates: start: 20030916, end: 20050101

REACTIONS (1)
  - INTERSTITIAL LUNG DISEASE [None]
